FAERS Safety Report 20141624 (Version 7)
Quarter: 2022Q4

REPORT INFORMATION
  Report Type: Spontaneous
  Country: NL (occurrence: NL)
  Receive Date: 20211202
  Receipt Date: 20221219
  Transmission Date: 20230113
  Serious: Yes (Hospitalization, Other)
  Sender: FDA-Public Use
  Company Number: NL-PFIZER INC-202101352798

PATIENT
  Age: 2 Year
  Sex: Male

DRUGS (3)
  1. PREGABALIN [Suspect]
     Active Substance: PREGABALIN
     Indication: Product used for unknown indication
     Dosage: DOSE (MGKG-1)/50.0 (600 MG, 50MG/KG)
     Route: 048
  2. PREGABALIN [Suspect]
     Active Substance: PREGABALIN
     Dosage: 50 MILLIGRAM/KILOGRAM
     Route: 065
  3. PREGABALIN [Suspect]
     Active Substance: PREGABALIN
     Dosage: 600 MILLIGRAM
     Route: 065

REACTIONS (8)
  - Accidental overdose [Unknown]
  - Accidental exposure to product [Unknown]
  - Overdose [Unknown]
  - Toxicity to various agents [Unknown]
  - Restlessness [Unknown]
  - Somnolence [Unknown]
  - Product use issue [Unknown]
  - Prescription drug used without a prescription [Unknown]
